FAERS Safety Report 4277287-1 (Version None)
Quarter: 2004Q1

REPORT INFORMATION
  Report Type: 
  Country: None (occurrence: None)
  Receive Date: 20040120
  Receipt Date: 20040105
  Transmission Date: 20041129
  Serious: Yes (Life-Threatening, Hospitalization)
  Sender: FDA-Public Use
  Company Number: 189770

PATIENT
  Age: 39 Year
  Sex: Female
  Weight: 47 kg

DRUGS (3)
  1. AVONEX [Suspect]
     Indication: MULTIPLE SCLEROSIS
     Dosage: 30 MCG QW IM
     Route: 030
     Dates: start: 19990101, end: 20031001
  2. SOLU-MEDROL [Concomitant]
  3. COPAXONE [Concomitant]

REACTIONS (7)
  - ADRENAL INSUFFICIENCY [None]
  - ENDOCRINE DISORDER [None]
  - GENERAL PHYSICAL HEALTH DETERIORATION [None]
  - MULTIPLE SCLEROSIS RELAPSE [None]
  - POLYDIPSIA PSYCHOGENIC [None]
  - POLYURIA [None]
  - STRESS SYMPTOMS [None]
